FAERS Safety Report 12079990 (Version 10)
Quarter: 2020Q1

REPORT INFORMATION
  Report Type: Spontaneous
  Country: US (occurrence: US)
  Receive Date: 20160216
  Receipt Date: 20200327
  Transmission Date: 20200409
  Serious: No
  Sender: FDA-Public Use
  Company Number: US-ACTELION PHARMACEUTICALS US, INC.-A-US2015-116757

PATIENT
  Sex: Male
  Weight: 63.95 kg

DRUGS (10)
  1. VELETRI [Suspect]
     Active Substance: EPOPROSTENOL
     Dosage: 40 UNK
     Route: 042
  2. LETAIRIS [Concomitant]
     Active Substance: AMBRISENTAN
  3. VELETRI [Suspect]
     Active Substance: EPOPROSTENOL
     Dosage: 31 NG/KG, PER MIN
     Route: 042
  4. OPSUMIT [Concomitant]
     Active Substance: MACITENTAN
  5. VELETRI [Suspect]
     Active Substance: EPOPROSTENOL
     Dosage: 28 NG/KG, PER MIN
     Route: 042
  6. VELETRI [Suspect]
     Active Substance: EPOPROSTENOL
     Indication: PULMONARY HYPERTENSION
     Dosage: 25 NG/KG, PER MIN
     Route: 042
     Dates: start: 20150127
  7. VELETRI [Suspect]
     Active Substance: EPOPROSTENOL
     Dosage: 35 NG
     Route: 042
  8. VELETRI [Suspect]
     Active Substance: EPOPROSTENOL
     Dosage: 45 NG/KG, PER MIN
     Route: 042
  9. VELETRI [Suspect]
     Active Substance: EPOPROSTENOL
     Dosage: 20 NG/KG, PER MIN
     Route: 042
     Dates: start: 20120810
  10. ADCIRCA [Concomitant]
     Active Substance: TADALAFIL

REACTIONS (15)
  - Cough [Unknown]
  - Rhinorrhoea [Unknown]
  - Nasopharyngitis [Unknown]
  - Weight decreased [Unknown]
  - Rash [Unknown]
  - Infection [Unknown]
  - Rash erythematous [Unknown]
  - Device connection issue [Unknown]
  - Epistaxis [Unknown]
  - Pyrexia [Unknown]
  - Influenza [Unknown]
  - Gait disturbance [Unknown]
  - Flushing [Unknown]
  - Pain in jaw [Unknown]
  - Device infusion issue [Unknown]
